FAERS Safety Report 4709076-5 (Version None)
Quarter: 2005Q3

REPORT INFORMATION
  Report Type: 
  Country: None (occurrence: None)
  Receive Date: 20050708
  Receipt Date: 20050302
  Transmission Date: 20060218
  Serious: Yes (Life-Threatening)
  Sender: FDA-Public Use
  Company Number: 200510715JP

PATIENT
  Age: 71 Year
  Sex: Female
  Weight: 54 kg

DRUGS (12)
  1. KETEK [Suspect]
     Indication: PNEUMONIA
     Route: 048
     Dates: start: 20050224, end: 20050228
  2. ITRIZOLE [Suspect]
     Indication: TINEA PEDIS
     Route: 048
     Dates: start: 20000704, end: 20050228
  3. BLOPRESS [Concomitant]
     Indication: HYPERTENSION
     Route: 048
     Dates: start: 20030215, end: 20050228
  4. SERUMLIPIDREDUCING AGENTS [Concomitant]
     Indication: HYPERCHOLESTEROLAEMIA
     Route: 048
     Dates: start: 20041228
  5. BASEN [Concomitant]
     Indication: DIABETES MELLITUS
     Route: 048
     Dates: start: 20010120
  6. STARSIS [Concomitant]
     Indication: DIABETES MELLITUS
     Route: 048
     Dates: start: 20021219
  7. PA [Concomitant]
     Indication: UPPER RESPIRATORY TRACT INFLAMMATION
     Dosage: DOSE: 8TABLETS
     Route: 048
     Dates: start: 20050218, end: 20050222
  8. DISPLOTIN [Concomitant]
     Indication: UPPER RESPIRATORY TRACT INFLAMMATION
     Dosage: DOSE: 3TABLETS
     Route: 048
     Dates: start: 20050218, end: 20050222
  9. BIOFERMIN [Concomitant]
     Indication: UPPER RESPIRATORY TRACT INFLAMMATION
     Dosage: DOSE: 3TABLETS
     Route: 048
     Dates: start: 20050218, end: 20050222
  10. FUZULEBAN [Concomitant]
     Indication: UPPER RESPIRATORY TRACT INFLAMMATION
     Route: 048
     Dates: start: 20050218, end: 20050304
  11. HICORT [Concomitant]
     Indication: PNEUMONIA
     Route: 042
     Dates: start: 20050221, end: 20050308
  12. LIASOPHIN [Concomitant]
     Indication: PNEUMONIA
     Route: 042
     Dates: start: 20050221, end: 20050303

REACTIONS (1)
  - HYPOTENSION [None]
